FAERS Safety Report 15464702 (Version 3)
Quarter: 2018Q4

REPORT INFORMATION
  Report Type: Spontaneous
  Country: JP (occurrence: JP)
  Receive Date: 20181004
  Receipt Date: 20181116
  Transmission Date: 20190204
  Serious: Yes (Disabling)
  Sender: FDA-Public Use
  Company Number: ALJP2018JP000511

PATIENT
  Age: 74 Year
  Sex: Female

DRUGS (1)
  1. BSS PLUS [Suspect]
     Active Substance: CALCIUM CHLORIDE\DEXTROSE\MAGNESIUM CHLORIDE\OXIGLUTATIONE\POTASSIUM CHLORIDE\SODIUM BICARBONATE\SODIUM CHLORIDE\SODIUM PHOSPHATE\SODIUM PHOSPHATE, DIBASIC
     Indication: EYE IRRIGATION
     Dosage: UNK, ONCE/SINGLE
     Route: 031
     Dates: start: 20180911, end: 20180911

REACTIONS (2)
  - Eye inflammation [Recovering/Resolving]
  - Visual acuity reduced [Recovering/Resolving]

NARRATIVE: CASE EVENT DATE: 20180912
